FAERS Safety Report 23606144 (Version 1)
Quarter: 2024Q1

REPORT INFORMATION
  Report Type: Spontaneous
  Country: FR (occurrence: FR)
  Receive Date: 20240307
  Receipt Date: 20240307
  Transmission Date: 20240410
  Serious: Yes (Hospitalization)
  Sender: FDA-Public Use
  Company Number: None

PATIENT
  Age: 75 Year
  Sex: Female
  Weight: 45 kg

DRUGS (1)
  1. METHOTREXATE [Suspect]
     Active Substance: METHOTREXATE
     Indication: Central nervous system lymphoma
     Dosage: 3.5 G/M2 2 TIMES PER CYCLE, 1FP
     Dates: start: 20231228, end: 20231228

REACTIONS (1)
  - Acute haemorrhagic leukoencephalitis [Not Recovered/Not Resolved]

NARRATIVE: CASE EVENT DATE: 20240105
